FAERS Safety Report 8610703 (Version 12)
Quarter: 2017Q1

REPORT INFORMATION
  Report Type: Report from Study
  Country: BR (occurrence: BR)
  Receive Date: 20120612
  Receipt Date: 20170213
  Transmission Date: 20170429
  Serious: Yes (Other)
  Sender: FDA-Public Use
  Company Number: BR-ROCHE-740116

PATIENT
  Age: 65 Year
  Sex: Female
  Weight: 77 kg

DRUGS (26)
  1. ACTEMRA [Suspect]
     Active Substance: TOCILIZUMAB
     Route: 042
  2. MABTHERA [Suspect]
     Active Substance: RITUXIMAB
     Route: 042
     Dates: start: 20141009
  3. METHOTREXATE. [Concomitant]
     Active Substance: METHOTREXATE
     Indication: RHEUMATOID ARTHRITIS
     Dosage: STARTED BEFORE 2005
     Route: 048
  4. PREDNISONE. [Concomitant]
     Active Substance: PREDNISONE
     Route: 065
  5. ACTEMRA [Suspect]
     Active Substance: TOCILIZUMAB
     Route: 042
  6. ACTEMRA [Suspect]
     Active Substance: TOCILIZUMAB
     Route: 042
  7. MABTHERA [Suspect]
     Active Substance: RITUXIMAB
     Route: 042
     Dates: start: 20141012
  8. LEXOTAN [Concomitant]
     Active Substance: BROMAZEPAM
     Indication: DEPRESSION
  9. FOLIC ACID. [Concomitant]
     Active Substance: FOLIC ACID
  10. CRESTOR [Concomitant]
     Active Substance: ROSUVASTATIN CALCIUM
     Dosage: AT NIGHT
     Route: 065
  11. OMEPRAZOLE. [Concomitant]
     Active Substance: OMEPRAZOLE
     Indication: GASTRITIS
     Dosage: STARTED BEFORE 2005
     Route: 048
  12. MABTHERA [Suspect]
     Active Substance: RITUXIMAB
     Indication: RHEUMATOID ARTHRITIS
     Route: 042
     Dates: start: 20130924
  13. MABTHERA [Suspect]
     Active Substance: RITUXIMAB
     Route: 042
     Dates: start: 20140409
  14. ATENOLOL. [Concomitant]
     Active Substance: ATENOLOL
     Indication: HYPERTENSION
     Dosage: STARTED BEFORE 2005
     Route: 048
  15. RIVOTRIL [Concomitant]
     Active Substance: CLONAZEPAM
     Indication: DEPRESSION
  16. OMEPRAZOLE. [Concomitant]
     Active Substance: OMEPRAZOLE
     Indication: GASTRIC DISORDER
  17. NEXIUM [Concomitant]
     Active Substance: ESOMEPRAZOLE MAGNESIUM
     Indication: GASTRIC DISORDER
  18. LANSOPRAZOLE. [Concomitant]
     Active Substance: LANSOPRAZOLE
  19. ACTEMRA [Suspect]
     Active Substance: TOCILIZUMAB
     Route: 042
  20. ACTEMRA [Suspect]
     Active Substance: TOCILIZUMAB
     Route: 042
  21. AMLODIPINE [Concomitant]
     Active Substance: AMLODIPINE BESYLATE
     Route: 065
  22. TANDRILAX [Concomitant]
     Active Substance: ACETAMINOPHEN\CAFFEINE\CARISOPRODOL\DICLOFENAC SODIUM
  23. ACTEMRA [Suspect]
     Active Substance: TOCILIZUMAB
     Indication: RHEUMATOID ARTHRITIS
     Dosage: RECENT INFUSION: 08/FEB/2017
     Route: 042
  24. ENALAPRIL [Concomitant]
     Active Substance: ENALAPRIL
     Route: 065
  25. DEFLAZACORT [Concomitant]
     Active Substance: DEFLAZACORT
     Route: 065
  26. RETINOL [Concomitant]
     Active Substance: RETINOL

REACTIONS (25)
  - Syncope [Recovered/Resolved]
  - Dry mouth [Not Recovered/Not Resolved]
  - Dry mouth [Not Recovered/Not Resolved]
  - Blood pressure fluctuation [Recovered/Resolved]
  - Fall [Unknown]
  - Oedema peripheral [Unknown]
  - Tooth disorder [Recovered/Resolved]
  - Asthenia [Recovered/Resolved]
  - Headache [Recovering/Resolving]
  - Eye pain [Not Recovered/Not Resolved]
  - Dizziness [Recovering/Resolving]
  - Sinusitis [Unknown]
  - Headache [Unknown]
  - Eye irritation [Recovered/Resolved]
  - Asthenia [Unknown]
  - Feeling abnormal [Unknown]
  - Arthropathy [Unknown]
  - Blood pressure fluctuation [Unknown]
  - Arthralgia [Recovered/Resolved]
  - Head discomfort [Unknown]
  - Blood pressure decreased [Recovered/Resolved]
  - Hypotension [Recovered/Resolved]
  - Dry eye [Not Recovered/Not Resolved]
  - Pyrexia [Unknown]
  - Arthralgia [Unknown]

NARRATIVE: CASE EVENT DATE: 20101020
